FAERS Safety Report 11649930 (Version 1)
Quarter: 2015Q4

REPORT INFORMATION
  Report Type: Spontaneous
  Country: US (occurrence: US)
  Receive Date: 20151021
  Receipt Date: 20151021
  Transmission Date: 20160304
  Serious: No
  Sender: FDA-Public Use
  Company Number: US-WATSON-2015-17894

PATIENT
  Sex: Male

DRUGS (2)
  1. OXYCODONE HYDROCHLORIDE/APAP UNKNOWN STRENGTH + FORMULATION (WATSON) [Suspect]
     Active Substance: ACETAMINOPHEN\OXYCODONE HYDROCHLORIDE
     Indication: PRODUCT USED FOR UNKNOWN INDICATION
     Dosage: UNK, UNKNOWN
     Route: 065
  2. OXYCODONE-ACETAMINOPHEN (AELLC) [Suspect]
     Active Substance: ACETAMINOPHEN\OXYCODONE HYDROCHLORIDE
     Indication: BACK PAIN
     Dosage: 10/325 MG, 3-4/DAY
     Route: 048
     Dates: start: 20150819

REACTIONS (6)
  - Product substitution issue [None]
  - Insomnia [Not Recovered/Not Resolved]
  - Product quality issue [None]
  - Therapeutic response changed [None]
  - Drug effect decreased [Not Recovered/Not Resolved]
  - Fatigue [Unknown]
